FAERS Safety Report 11792391 (Version 1)
Quarter: 2015Q4

REPORT INFORMATION
  Report Type: Spontaneous
  Country: CA (occurrence: CA)
  Receive Date: 20151202
  Receipt Date: 20151202
  Transmission Date: 20160305
  Serious: Yes (Other)
  Sender: FDA-Public Use
  Company Number: CA-009507513-1511CAN013447

PATIENT
  Age: 58 Year
  Sex: Male

DRUGS (9)
  1. PERINDOPRIL [Concomitant]
     Active Substance: PERINDOPRIL
  2. BISOPROLOL [Concomitant]
     Active Substance: BISOPROLOL
  3. SYNTHROID [Concomitant]
     Active Substance: LEVOTHYROXINE SODIUM
  4. PAROXETINE [Concomitant]
     Active Substance: PAROXETINE\PAROXETINE HYDROCHLORIDE
  5. NITROGLYCERIN. [Concomitant]
     Active Substance: NITROGLYCERIN
  6. INTRON A [Suspect]
     Active Substance: INTERFERON ALFA-2B
     Indication: POLYCYTHAEMIA
     Dosage: THREE TIMES/WEEK
  7. COUMADIN [Concomitant]
     Active Substance: WARFARIN SODIUM
  8. CRESTOR [Concomitant]
     Active Substance: ROSUVASTATIN CALCIUM
  9. NORTRIPTYLINE [Concomitant]
     Active Substance: NORTRIPTYLINE

REACTIONS (4)
  - Pyrexia [Unknown]
  - Cardiac operation [Unknown]
  - Product use issue [Unknown]
  - Blood creatine phosphokinase increased [Unknown]
